FAERS Safety Report 4569202-8 (Version None)
Quarter: 2005Q1

REPORT INFORMATION
  Report Type: 
  Country: None (occurrence: None)
  Receive Date: 20050203
  Receipt Date: 20050131
  Transmission Date: 20050727
  Serious: Yes (Other)
  Sender: FDA-Public Use
  Company Number: US-BRISTOL-MYERS SQUIBB COMPANY-12844080

PATIENT
  Age: 61 Year
  Sex: Male
  Weight: 104 kg

DRUGS (14)
  1. GLUCOVANCE [Suspect]
     Indication: DIABETES MELLITUS NON-INSULIN-DEPENDENT
     Dosage: CONSUMER UNABLE TO PROVIDE DAILY DOSE
     Route: 048
  2. GLUCOTROL [Concomitant]
  3. ATENOLOL [Concomitant]
  4. ZOCOR [Concomitant]
  5. ENALAPRIL MALEATE [Concomitant]
  6. FUROSEMIDE [Concomitant]
     Dosage: 80 MG DAILY WHEN NEAR A BATHROOM
  7. GLIPIZIDE [Concomitant]
  8. DOXAZOSIN MESYLATE [Concomitant]
  9. GABAPENTIN [Concomitant]
     Dosage: 2 TABLETS DAILY PRESCRIBED, PATIENT ONLY TAKES ONE TABLET
  10. VITAMIN C [Concomitant]
     Dosage: ONE TABLET
  11. ASPIRIN [Concomitant]
  12. INSULIN [Concomitant]
     Dosage: 7-8 HOURS WHEN NEEDED
  13. GEMFIBROZIL [Concomitant]
     Dosage: DOSAGE FORM = TABLET
  14. COL-RITE [Concomitant]

REACTIONS (3)
  - GASTRITIS [None]
  - NEOPLASM MALIGNANT [None]
  - RENAL DISORDER [None]
